FAERS Safety Report 10289473 (Version 1)
Quarter: 2014Q3

REPORT INFORMATION
  Report Type: Spontaneous
  Country: JP (occurrence: JP)
  Receive Date: 20140710
  Receipt Date: 20140710
  Transmission Date: 20150326
  Serious: Yes (Other)
  Sender: FDA-Public Use
  Company Number: JP-BRISTOL-MYERS SQUIBB COMPANY-21144233

PATIENT
  Age: 89 Year
  Sex: Male
  Weight: 60 kg

DRUGS (13)
  1. AZILSARTAN MEDOXOMIL [Concomitant]
     Active Substance: AZILSARTAN KAMEDOXOMIL
     Dosage: TAB
     Route: 048
  2. POTASSIUM CHLORIDE. [Concomitant]
     Active Substance: POTASSIUM CHLORIDE
     Dosage: INJ
  3. WARFARIN [Concomitant]
     Active Substance: WARFARIN
     Dosage: TAB
     Route: 048
  4. TAKEPRON [Concomitant]
     Active Substance: LANSOPRAZOLE
     Dosage: TABS
     Route: 048
  5. NOVOLIN [Concomitant]
     Active Substance: INSULIN HUMAN
     Dosage: INJ
  6. EPLERENONE. [Concomitant]
     Active Substance: EPLERENONE
     Dosage: TAB
  7. ASPIRIN. [Concomitant]
     Active Substance: ASPIRIN
     Route: 048
  8. LIVALO [Concomitant]
     Active Substance: PITAVASTATIN CALCIUM
     Dosage: TABS
     Route: 048
  9. PLETAAL [Concomitant]
     Active Substance: CILOSTAZOL
     Dosage: TAB
     Route: 048
  10. DIART [Concomitant]
     Active Substance: AZOSEMIDE
     Dosage: TAB
     Route: 048
  11. GLUCOSE [Concomitant]
     Active Substance: DEXTROSE
     Dosage: INJ
  12. ELIQUIS [Suspect]
     Active Substance: APIXABAN
     Route: 048
     Dates: start: 20140320, end: 20140410
  13. WARFARIN SODIUM. [Suspect]
     Active Substance: WARFARIN SODIUM
     Dates: start: 20140317, end: 20140320

REACTIONS (2)
  - Anaemia [Unknown]
  - Liver disorder [Recovered/Resolved]

NARRATIVE: CASE EVENT DATE: 20140320
